FAERS Safety Report 9365840 (Version 1)
Quarter: 2013Q2

REPORT INFORMATION
  Report Type: Spontaneous
  Country: IT (occurrence: IT)
  Receive Date: 20130625
  Receipt Date: 20130625
  Transmission Date: 20140414
  Serious: Yes (Disabling)
  Sender: FDA-Public Use
  Company Number: PHHY2013IT064120

PATIENT
  Age: 45 Year
  Sex: Female

DRUGS (7)
  1. ZOMETA [Suspect]
     Indication: BREAST CANCER METASTATIC
     Dosage: UNK UKN, CYCLIC
     Route: 042
     Dates: start: 20120522, end: 20130415
  2. AVASTIN [Suspect]
     Indication: BREAST CANCER METASTATIC
     Dosage: UNK UKN, CYCLIC
     Route: 042
     Dates: start: 20120416, end: 20130515
  3. PACLITAXEL [Concomitant]
     Dosage: UNK UKN, UNK
  4. CARBOPLATIN [Concomitant]
     Dosage: UNK UKN, UNK
  5. LANSOPRAZOL [Concomitant]
     Dosage: UNK UKN, UNK
     Dates: start: 2012
  6. LYRICA [Concomitant]
     Dosage: 75 MG, UNK
  7. LASIX [Concomitant]
     Dosage: UNK UKN, UNK
     Dates: start: 20121204

REACTIONS (4)
  - Osteonecrosis [Unknown]
  - Exposed bone in jaw [Unknown]
  - Gingival infection [Unknown]
  - Fistula [Unknown]
